FAERS Safety Report 6164314-X (Version None)
Quarter: 2009Q2

REPORT INFORMATION
  Report Type: 
  Country: None (occurrence: None)
  Receive Date: 20090420
  Receipt Date: 20090413
  Transmission Date: 20091009
  Serious: Yes (Other)
  Sender: FDA-Public Use
  Company Number: 2008JP005154

PATIENT
  Age: 6 Year
  Sex: Male
  Weight: 27 kg

DRUGS (23)
  1. FUNGUARD (MICAFUNGIN INJECTION) INJECTION [Suspect]
     Indication: INFECTION PROPHYLAXIS
     Dosage: 50 MG, UID/QD, IV DRIP; 180 MG, UID/QD, IV DRIP
     Route: 041
     Dates: start: 20080227, end: 20080321
  2. FUNGUARD (MICAFUNGIN INJECTION) INJECTION [Suspect]
     Indication: INFECTION PROPHYLAXIS
     Dosage: 50 MG, UID/QD, IV DRIP; 180 MG, UID/QD, IV DRIP
     Route: 041
     Dates: start: 20080322, end: 20080401
  3. FUNGUARD (MICAFUNGIN INJECTION) INJECTION [Suspect]
     Indication: INFECTION PROPHYLAXIS
     Dosage: 50 MG, UID/QD, IV DRIP; 180 MG, UID/QD, IV DRIP
     Route: 041
     Dates: start: 20080411, end: 20080516
  4. AMBISOME INJECTION [Concomitant]
  5. VFEND (VORICONZOLE) INJECTION [Concomitant]
  6. VEPESID [Concomitant]
  7. ENDOXAN (CYCLOPHOSPHAMIDE MONOHYDRATE) INJECTION [Concomitant]
  8. METHOTREXATE [Concomitant]
  9. PROGRAF [Concomitant]
  10. PROGRAF [Concomitant]
  11. NEUTROGIN (LENOGRASTIM) INJECTION [Concomitant]
  12. VENILON (IMMUNOGLOBULIN HUMAN NORMAL) INJECTION [Concomitant]
  13. FIRSTCIN (CEFOZOPRAN HYDROCHLORIDE) INJECTION [Concomitant]
  14. MEROPEN (MEROPENEM TRIHYDRATE) INJECTION [Concomitant]
  15. MINOMYCIN (MEROPENEM TRIHYDRATE) INJECTION [Concomitant]
  16. TARGOCID [Concomitant]
  17. ORGARAN [Concomitant]
  18. ALBUMIN (ALBUMIN) INJECTION [Concomitant]
  19. SULFAMETHOXAZOLE AND TRIMETHOPRIM [Concomitant]
  20. ZOVIRAX [Concomitant]
  21. NORFLOXACIN [Concomitant]
  22. COCARL [Concomitant]
  23. BIOFERMIN (STREPTOCOCCUS FAECALIS, BACILLUS SUTILIS, LACTOBACILLUS ACI [Concomitant]

REACTIONS (5)
  - BLOOD SODIUM DECREASED [None]
  - BRONCHITIS [None]
  - DIARRHOEA [None]
  - THROMBOTIC MICROANGIOPATHY [None]
  - VOMITING [None]
